FAERS Safety Report 22250280 (Version 1)
Quarter: 2023Q2

REPORT INFORMATION
  Report Type: Spontaneous
  Country: CA (occurrence: CA)
  Receive Date: 20230425
  Receipt Date: 20230425
  Transmission Date: 20230721
  Serious: Yes (Other)
  Sender: FDA-Public Use
  Company Number: CA-GSKCCFAMERS-Case-01649873_AE-93133

PATIENT

DRUGS (2)
  1. ADVAIR DISKUS [Suspect]
     Active Substance: FLUTICASONE PROPIONATE\SALMETEROL XINAFOATE
     Indication: Asthma
     Dosage: 1 PUFF(S), BID 250 MCG/UG, STARTED IN 2004-2005
     Route: 055
     Dates: start: 2004
  2. ADVAIR DISKUS [Suspect]
     Active Substance: FLUTICASONE PROPIONATE\SALMETEROL XINAFOATE
     Dosage: 500 UG, BID
     Route: 055
     Dates: start: 2020

REACTIONS (11)
  - Bronchial obstruction [Unknown]
  - Asthma [Recovering/Resolving]
  - Respiratory disorder [Recovered/Resolved]
  - SARS-CoV-2 test positive [Unknown]
  - Cough [Recovered/Resolved]
  - Condition aggravated [Unknown]
  - Poor quality sleep [Unknown]
  - Dyspnoea [Recovering/Resolving]
  - Dysphonia [Recovering/Resolving]
  - Drug ineffective [Unknown]
  - Product complaint [Unknown]

NARRATIVE: CASE EVENT DATE: 20200101
